FAERS Safety Report 24330885 (Version 1)
Quarter: 2024Q3

REPORT INFORMATION
  Report Type: Spontaneous
  Country: US (occurrence: US)
  Receive Date: 20240918
  Receipt Date: 20240918
  Transmission Date: 20241016
  Serious: No
  Sender: AMGEN
  Company Number: US-AMGEN-USASP2024185297

PATIENT
  Age: 66 Year
  Sex: Female

DRUGS (1)
  1. REPATHA [Suspect]
     Active Substance: EVOLOCUMAB
     Indication: Product used for unknown indication
     Dosage: UNK PRODUCT STRENGTH: 140 MILLIGRAMS
     Route: 065

REACTIONS (3)
  - Drug dose omission by device [Unknown]
  - Accidental exposure to product [Unknown]
  - Injection site pain [Unknown]

NARRATIVE: CASE EVENT DATE: 20240912
